FAERS Safety Report 8860577 (Version 1)
Quarter: 2012Q4

REPORT INFORMATION
  Report Type: 
  Country: PT (occurrence: PT)
  Receive Date: 20121025
  Receipt Date: 20121025
  Transmission Date: 20130627
  Serious: Yes (Hospitalization, Congenital Anomaly)
  Sender: FDA-Public Use
  Company Number: PT-BAYER-2012-109006

PATIENT
  Age: 0 None
  Sex: Male
  Weight: 2.02 kg

DRUGS (4)
  1. ASPIRINA [Suspect]
     Indication: DRUG USE FOR UNKNOWN INDICATION
     Dosage: 100 mg, QD
     Route: 064
  2. ENALAPRIL [Suspect]
     Route: 064
  3. ALLOPURINOL [Suspect]
     Indication: PRODUCT USED FOR UNKNOWN INDICATION
     Route: 064
  4. FOLIFER [Concomitant]
     Indication: PROPHYLAXIS
     Dosage: 1 DF, QD
     Route: 064

REACTIONS (6)
  - Pulmonary malformation [Not Recovered/Not Resolved]
  - Congenital cystic lung [Not Recovered/Not Resolved]
  - Congenital cerebrovascular anomaly [Not Recovered/Not Resolved]
  - Multiple congenital abnormalities [Not Recovered/Not Resolved]
  - Tachypnoea [Not Recovered/Not Resolved]
  - Respiratory distress [Not Recovered/Not Resolved]
